FAERS Safety Report 7552145-5 (Version None)
Quarter: 2011Q2

REPORT INFORMATION
  Report Type: 
  Country: None (occurrence: None)
  Receive Date: 20110616
  Receipt Date: 20110603
  Transmission Date: 20111010
  Serious: Yes (Hospitalization, Other)
  Sender: FDA-Public Use
  Company Number: US-BAYER-201031600NA

PATIENT
  Age: 17 Year
  Sex: Female
  Weight: 49.887 kg

DRUGS (15)
  1. INDOMETHACIN [Concomitant]
     Dosage: UNK
     Dates: start: 20070101
  2. PHENAZOPYRIDINE HCL TAB [Concomitant]
     Dosage: UNK
     Dates: start: 20080101
  3. CLINDAMYCIN [Concomitant]
     Dosage: UNK
     Dates: start: 20070101
  4. TRIMETHOPRIM [Concomitant]
     Dosage: 160 MG, UNK
     Dates: start: 20080501
  5. YAZ [Suspect]
     Indication: CONTRACEPTION
     Dosage: UNK
     Route: 048
     Dates: start: 20070313, end: 20090317
  6. CETIRIZINE HCL [Concomitant]
     Dosage: UNK
     Dates: start: 20080101
  7. NITROFURANTOIN [Concomitant]
     Dosage: UNK
     Dates: start: 20070101
  8. YAZ [Suspect]
     Dosage: UNK
     Dates: start: 20090618, end: 20090925
  9. YASMIN [Suspect]
     Indication: PRODUCT USED FOR UNKNOWN INDICATION
     Dosage: UNK
     Route: 048
     Dates: start: 20080101
  10. ANTIBIOTICS [Concomitant]
     Dosage: UNK UNK, PRN
  11. SULFONAMIDES AND TRIMETHOPRIM [Concomitant]
     Dosage: 800 MG, UNK
     Dates: start: 20080501
  12. FAMOTIDINE [Concomitant]
     Dosage: 20 MG, UNK
     Dates: start: 20080501
  13. LEVAQUIN [Concomitant]
     Dosage: UNK
     Dates: start: 20070101
  14. ONDANSETRON [Concomitant]
     Dosage: 80 MG, UNK
     Dates: start: 20080501
  15. DOXYCYCLINE [Concomitant]
     Dosage: UNK
     Dates: start: 20070101

REACTIONS (16)
  - GALLBLADDER DISORDER [None]
  - JAUNDICE [None]
  - URINARY TRACT INFECTION [None]
  - CHOLECYSTITIS CHRONIC [None]
  - NAUSEA [None]
  - ABDOMINAL PAIN LOWER [None]
  - CHROMATURIA [None]
  - BILE DUCT STONE [None]
  - ENURESIS [None]
  - VAGINAL DISCHARGE [None]
  - ABDOMINAL PAIN UPPER [None]
  - ABDOMINAL PAIN [None]
  - PANCREATITIS [None]
  - DECREASED APPETITE [None]
  - POLLAKIURIA [None]
  - CHOLELITHIASIS [None]
